FAERS Safety Report 25019120 (Version 1)
Quarter: 2025Q1

REPORT INFORMATION
  Report Type: Spontaneous
  Country: CN (occurrence: CN)
  Receive Date: 20250227
  Receipt Date: 20250227
  Transmission Date: 20250408
  Serious: Yes (Other)
  Sender: PFIZER
  Company Number: CN-PFIZER INC-PV202500023290

PATIENT
  Age: 87 Year
  Sex: Male
  Weight: 70 kg

DRUGS (2)
  1. EPIRUBICIN [Suspect]
     Active Substance: EPIRUBICIN
     Indication: Hepatic lesion
     Dosage: 40 MG, 1X/DAY
     Route: 025
     Dates: start: 20250218, end: 20250219
  2. RALTITREXED [Suspect]
     Active Substance: RALTITREXED
     Indication: Hepatic lesion
     Dosage: 4 MG, 1X/DAY
     Route: 025
     Dates: start: 20250218, end: 20250219

REACTIONS (2)
  - Drug-induced liver injury [Unknown]
  - Off label use [Unknown]

NARRATIVE: CASE EVENT DATE: 20250218
